FAERS Safety Report 10679009 (Version 4)
Quarter: 2019Q1

REPORT INFORMATION
  Report Type: Spontaneous
  Country: US (occurrence: US)
  Receive Date: 20141229
  Receipt Date: 20190211
  Transmission Date: 20190417
  Serious: Yes (Other)
  Sender: FDA-Public Use
  Company Number: US-PFIZER INC-2014354617

PATIENT
  Age: 30 Year
  Sex: Female
  Weight: 89 kg

DRUGS (2)
  1. IBUPROFEN. [Suspect]
     Active Substance: IBUPROFEN
     Indication: ARTHRALGIA
     Dosage: 10 MG, 3X/DAY
     Dates: start: 1980
  2. PREDNISONE. [Concomitant]
     Active Substance: PREDNISONE
     Dosage: UNK
     Dates: start: 198310, end: 201310

REACTIONS (4)
  - Pruritus [Recovered/Resolved]
  - Peripheral swelling [Unknown]
  - Scleroderma [Unknown]
  - Drug hypersensitivity [Unknown]

NARRATIVE: CASE EVENT DATE: 1980
